FAERS Safety Report 21970623 (Version 2)
Quarter: 2025Q1

REPORT INFORMATION
  Report Type: Spontaneous
  Country: CA (occurrence: CA)
  Receive Date: 20230209
  Receipt Date: 20250217
  Transmission Date: 20250409
  Serious: Yes (Death, Hospitalization, Other)
  Sender: CELLTRION
  Company Number: CA-CELLTRION INC.-2023CA002348

PATIENT

DRUGS (21)
  1. RITUXIMAB [Suspect]
     Active Substance: RITUXIMAB
     Indication: Rheumatoid arthritis
     Route: 042
  2. ASPIRIN [Concomitant]
     Active Substance: ASPIRIN
     Route: 065
  3. ATIVAN [Concomitant]
     Active Substance: LORAZEPAM
  4. ATORVASTATIN [Concomitant]
     Active Substance: ATORVASTATIN
     Route: 048
  5. DIPHENHYDRAMINE [Concomitant]
     Active Substance: DIPHENHYDRAMINE
     Route: 048
  6. BISOPROLOL [Concomitant]
     Active Substance: BISOPROLOL
     Route: 065
  7. CALCIUM [Concomitant]
     Active Substance: CALCIUM
  8. CELEBREX [Concomitant]
     Active Substance: CELECOXIB
  9. ESCITALOPRAM [Concomitant]
     Active Substance: ESCITALOPRAM OXALATE
     Route: 065
  10. HYDROCHLOROTHIAZIDE [Concomitant]
     Active Substance: HYDROCHLOROTHIAZIDE
  11. LEFLUNOMIDE [Concomitant]
     Active Substance: LEFLUNOMIDE
     Route: 065
  12. LORAZEPAM [Concomitant]
     Active Substance: LORAZEPAM
     Route: 065
  13. METHYLPREDNISOLONE SODIUM SUCCINATE [Concomitant]
     Active Substance: METHYLPREDNISOLONE SODIUM SUCCINATE
     Route: 042
  14. METOPROLOL [Concomitant]
     Active Substance: METOPROLOL
  15. NITROGLYCERIN [Concomitant]
     Active Substance: NITROGLYCERIN
  16. PANTOPRAZOLE [Concomitant]
     Active Substance: PANTOPRAZOLE
  17. PERINDOPRIL [Concomitant]
     Active Substance: PERINDOPRIL
     Route: 065
  18. TADALAFIL [Concomitant]
     Active Substance: TADALAFIL
     Route: 065
  19. TICAGRELOR [Concomitant]
     Active Substance: TICAGRELOR
  20. TYLENOL [Concomitant]
     Active Substance: ACETAMINOPHEN
     Route: 048
  21. ZOPICLONE [Concomitant]
     Active Substance: ZOPICLONE
     Route: 065

REACTIONS (9)
  - Abdominal wall haematoma [Fatal]
  - COVID-19 [Fatal]
  - Chest pain [Fatal]
  - Heart rate decreased [Fatal]
  - Hypoxia [Fatal]
  - Myocardial infarction [Fatal]
  - Pneumonia [Fatal]
  - Pulse absent [Fatal]
  - Respiratory failure [Fatal]
